FAERS Safety Report 14321648 (Version 4)
Quarter: 2018Q1

REPORT INFORMATION
  Report Type: Report from Study
  Country: BR (occurrence: BR)
  Receive Date: 20171224
  Receipt Date: 20180316
  Transmission Date: 20180509
  Serious: Yes (Other)
  Sender: FDA-Public Use
  Company Number: PHHY2017BR151693

PATIENT
  Sex: Male
  Weight: 70 kg

DRUGS (1)
  1. SANDOSTATIN LAR DEPOT [Suspect]
     Active Substance: OCTREOTIDE ACETATE
     Indication: NEUROENDOCRINE TUMOUR
     Dosage: 30 MG, QMO (ONCE A MONTH)
     Route: 030
     Dates: start: 201404

REACTIONS (29)
  - Seizure [Unknown]
  - Weight fluctuation [Unknown]
  - Erythema [Unknown]
  - Swelling face [Unknown]
  - Skin wrinkling [Unknown]
  - Gastritis [Not Recovered/Not Resolved]
  - Injection site swelling [Unknown]
  - Aphonia [Unknown]
  - Nephrolithiasis [Recovering/Resolving]
  - Malaise [Recovering/Resolving]
  - Mania [Unknown]
  - Ill-defined disorder [Unknown]
  - Headache [Recovering/Resolving]
  - Weight increased [Unknown]
  - Urine output decreased [Unknown]
  - Pain in extremity [Recovering/Resolving]
  - Diarrhoea [Unknown]
  - Tachycardia [Unknown]
  - Hyperphagia [Recovering/Resolving]
  - Injection site pain [Recovering/Resolving]
  - Stress [Unknown]
  - Drug ineffective [Unknown]
  - Liver injury [Unknown]
  - Syncope [Unknown]
  - Daydreaming [Recovering/Resolving]
  - Abdominal pain [Recovering/Resolving]
  - Cerebrovascular accident [Unknown]
  - Malignant neoplasm progression [Unknown]
  - Insomnia [Unknown]

NARRATIVE: CASE EVENT DATE: 2014
